FAERS Safety Report 19843725 (Version 8)
Quarter: 2021Q4

REPORT INFORMATION
  Report Type: Report from Study
  Country: GB (occurrence: GB)
  Receive Date: 20210917
  Receipt Date: 20211209
  Transmission Date: 20220303
  Serious: Yes (Death, Hospitalization, Other)
  Sender: FDA-Public Use
  Company Number: GB-CELLTRION INC.-2021GB012710

PATIENT

DRUGS (57)
  1. TRASTUZUMAB [Suspect]
     Active Substance: TRASTUZUMAB
     Indication: Breast cancer
     Dosage: 525 MG EVERY 3 WEEKS
     Route: 042
     Dates: start: 20170524, end: 20170524
  2. TRASTUZUMAB [Suspect]
     Active Substance: TRASTUZUMAB
     Indication: Breast cancer metastatic
     Dosage: 400 MG, EVERY 3 WEEKS
     Route: 042
     Dates: start: 20170614, end: 20180425
  3. TRASTUZUMAB [Suspect]
     Active Substance: TRASTUZUMAB
     Dosage: 378 MG EVERY 3 WEEKS
     Route: 042
     Dates: start: 20180516, end: 20190327
  4. ERIBULIN MESYLATE [Suspect]
     Active Substance: ERIBULIN MESYLATE
     Indication: Breast cancer
     Dosage: 1.85 MILLIGRAM
     Route: 042
     Dates: start: 20200611, end: 20200820
  5. ERIBULIN MESYLATE [Suspect]
     Active Substance: ERIBULIN MESYLATE
     Indication: Breast cancer metastatic
  6. NERATINIB [Suspect]
     Active Substance: NERATINIB
     Indication: Breast cancer
     Dosage: O.D. - ONCE DAILY ORAL
     Route: 048
     Dates: start: 20200919, end: 20201104
  7. PACLITAXEL [Suspect]
     Active Substance: PACLITAXEL
     Indication: Breast cancer
     Dosage: 450 MG, EVERY 3 WEEKS
     Route: 042
     Dates: start: 20170614, end: 20170614
  8. PACLITAXEL [Suspect]
     Active Substance: PACLITAXEL
     Indication: Breast cancer metastatic
     Dosage: 375 MG EVERY 3 WEEKS
     Route: 042
     Dates: start: 20170705, end: 20170726
  9. PACLITAXEL [Suspect]
     Active Substance: PACLITAXEL
     Dosage: 300 MG, EVERY 3 WEEKS
     Route: 042
     Dates: start: 20170816, end: 20170906
  10. PERTUZUMAB [Suspect]
     Active Substance: PERTUZUMAB
     Indication: Breast cancer
     Dosage: 840 MG, EVERY 3 WEEK
     Route: 042
     Dates: start: 20170524, end: 20170524
  11. PERTUZUMAB [Suspect]
     Active Substance: PERTUZUMAB
     Indication: Breast cancer metastatic
     Dosage: 420 MG, EVERY 3 WEEKS
     Route: 042
     Dates: start: 20170614, end: 20190327
  12. ADO-TRASTUZUMAB EMTANSINE [Suspect]
     Active Substance: ADO-TRASTUZUMAB EMTANSINE
     Indication: Breast cancer
     Dosage: 240 MG, EVERY 3 WEEKS
     Route: 042
     Dates: start: 20190427, end: 20190606
  13. ADO-TRASTUZUMAB EMTANSINE [Suspect]
     Active Substance: ADO-TRASTUZUMAB EMTANSINE
     Indication: Breast cancer metastatic
     Dosage: 200 MG, EVERY 3 WEEKS
     Route: 042
     Dates: start: 20190627, end: 20190718
  14. ADO-TRASTUZUMAB EMTANSINE [Suspect]
     Active Substance: ADO-TRASTUZUMAB EMTANSINE
     Dosage: 160 MILLIGRAM, 3 WEEK
     Route: 042
     Dates: start: 20190829, end: 20200326
  15. CAPECITABINE [Suspect]
     Active Substance: CAPECITABINE
     Indication: Breast cancer
     Dosage: 1300 MG
     Route: 048
     Dates: start: 20201020
  16. CAPECITABINE [Suspect]
     Active Substance: CAPECITABINE
     Indication: Breast cancer metastatic
  17. DOCETAXEL [Suspect]
     Active Substance: DOCETAXEL
     Indication: Breast cancer
     Dosage: 130 MG, EVERY 3 WEEKS
     Route: 042
     Dates: start: 20170525, end: 20170525
  18. DOCETAXEL [Suspect]
     Active Substance: DOCETAXEL
     Indication: Breast cancer metastatic
  19. AMITRIPTYLINE [Concomitant]
     Active Substance: AMITRIPTYLINE
     Indication: Depressed mood
     Dosage: 5 MG, QD
     Route: 048
     Dates: start: 20190827, end: 20190919
  20. AZTREONAM [Concomitant]
     Active Substance: AZTREONAM
     Indication: Product contamination microbial
     Dosage: UNK
     Route: 042
     Dates: start: 20201028, end: 20201104
  21. CALCIUM\CHOLECALCIFEROL [Concomitant]
     Active Substance: CALCIUM\CHOLECALCIFEROL
     Dosage: 1 DF, EVERY 0.33 DAY
     Route: 048
     Dates: start: 20170525, end: 20210205
  22. CEFTRIAXONE [Concomitant]
     Active Substance: CEFTRIAXONE
     Indication: Product contamination microbial
     Dosage: 2 G, QD
     Route: 042
  23. CEFTRIAXONE [Concomitant]
     Active Substance: CEFTRIAXONE
     Dosage: 250 MG, EVERY 0.5 DAY
     Route: 048
     Dates: start: 20200928, end: 20201012
  24. CEFUROXIME [Concomitant]
     Active Substance: CEFUROXIME
     Indication: Product contamination microbial
     Dosage: 250 MG, EVERY 0.5 DAY
     Route: 048
     Dates: start: 20200925, end: 20201019
  25. CEFUROXIME [Concomitant]
     Active Substance: CEFUROXIME
     Dosage: 250 MG, EVERY 0.5 DAY
     Route: 048
     Dates: start: 20201028
  26. CETIRIZINE [Concomitant]
     Active Substance: CETIRIZINE HYDROCHLORIDE
     Indication: Urticaria papular
     Dosage: UNK, 1X/DAY
     Route: 048
     Dates: start: 20190313, end: 2019
  27. CHLORHEXIDINE GLUCONATE [Concomitant]
     Active Substance: CHLORHEXIDINE GLUCONATE
     Dosage: 10 ML, EVERY 0.25 DAY
     Route: 061
     Dates: start: 20170525, end: 2017
  28. CHLORPHENIRAMINE MALEATE [Concomitant]
     Active Substance: CHLORPHENIRAMINE MALEATE
     Dosage: 4 MG, FREQ: 0.25 DAY
     Route: 048
     Dates: start: 20170526, end: 20170530
  29. CIPROFLOXACIN [Concomitant]
     Active Substance: CIPROFLOXACIN
     Indication: Cholecystitis acute
     Dosage: UNK
     Dates: start: 20200707, end: 202007
  30. CIPROFLOXACIN [Concomitant]
     Active Substance: CIPROFLOXACIN
     Indication: Abdominal pain upper
     Dosage: UNK
     Dates: start: 20200909, end: 20200916
  31. CLOBETASOL PROPIONATE [Concomitant]
     Active Substance: CLOBETASOL PROPIONATE
     Dosage: 0.05 % FREQ:.0 5 DAY
     Route: 061
     Dates: start: 20170210, end: 201708
  32. CLOBETASOL [Concomitant]
     Active Substance: CLOBETASOL
     Dosage: UNK
  33. DOMPERIDONE [Concomitant]
     Active Substance: DOMPERIDONE
     Dosage: 10 MG, FREQ: 0.33 DAYS
     Route: 048
     Dates: start: 20170523, end: 20170526
  34. FUSIDIC ACID [Concomitant]
     Active Substance: FUSIDIC ACID
     Indication: Rhinitis
     Dosage: UNK
     Dates: start: 201905, end: 201905
  35. CYCLOSPORINE [Concomitant]
     Active Substance: CYCLOSPORINE
     Indication: Blepharitis
     Dosage: UNK
     Route: 047
     Dates: start: 201708, end: 2018
  36. LANSOPRAZOLE [Concomitant]
     Active Substance: LANSOPRAZOLE
     Indication: Gastritis
     Dosage: 30 MG, 1X/DAY
     Route: 048
     Dates: start: 20190730, end: 202010
  37. LOPERAMIDE [Concomitant]
     Active Substance: LOPERAMIDE
     Dosage: 2 MG
     Route: 048
     Dates: start: 20170613, end: 20201113
  38. METRONIDAZOLE [Concomitant]
     Active Substance: METRONIDAZOLE
     Indication: Cholecystitis acute
     Dosage: UNK
     Route: 042
     Dates: start: 20200630, end: 20200709
  39. METRONIDAZOLE [Concomitant]
     Active Substance: METRONIDAZOLE
     Indication: Abdominal pain upper
     Dosage: UNK
     Dates: start: 20200909, end: 20200914
  40. METRONIDAZOLE [Concomitant]
     Active Substance: METRONIDAZOLE
     Indication: Duodenal ulcer
     Dosage: 2 MG, QD
     Route: 042
     Dates: start: 20200925, end: 20200927
  41. METRONIDAZOLE [Concomitant]
     Active Substance: METRONIDAZOLE
     Dosage: 400 MG, MONTHLY (STOP DATE: NOV 2020)
     Route: 048
     Dates: start: 20201116
  42. ACETAMINOPHEN [Concomitant]
     Active Substance: ACETAMINOPHEN
     Dosage: 1 IU
     Route: 048
     Dates: start: 20170525, end: 20210205
  43. POTASSIUM BICARBONATE\POTASSIUM CHLORIDE [Concomitant]
     Active Substance: POTASSIUM BICARBONATE\POTASSIUM CHLORIDE
     Dosage: 1 DF, EVERY 0.5 DAY
     Route: 048
     Dates: start: 20170525, end: 20170529
  44. TEICOPLANIN [Concomitant]
     Active Substance: TEICOPLANIN
     Indication: Product contamination microbial
     Dosage: UNK
     Route: 042
     Dates: start: 20200502, end: 20200515
  45. TEICOPLANIN [Concomitant]
     Active Substance: TEICOPLANIN
     Indication: Biliary sepsis
     Dosage: UNK
     Route: 042
     Dates: start: 20200925, end: 20200925
  46. TEICOPLANIN [Concomitant]
     Active Substance: TEICOPLANIN
     Dosage: UNK
     Route: 042
     Dates: start: 20201028, end: 20201104
  47. TINZAPARIN [Concomitant]
     Active Substance: TINZAPARIN
     Dosage: UNK, QD
     Route: 058
     Dates: start: 20170713, end: 20190723
  48. TINZAPARIN [Concomitant]
     Active Substance: TINZAPARIN
     Dosage: 4500 IU, QD
     Route: 058
     Dates: start: 20190916, end: 20191008
  49. TRANEXAMIC ACID [Concomitant]
     Active Substance: TRANEXAMIC ACID
     Indication: Duodenal ulcer
     Dosage: UNK
     Dates: start: 20190722, end: 201907
  50. TRANEXAMIC ACID [Concomitant]
     Active Substance: TRANEXAMIC ACID
     Indication: Coagulopathy
     Dosage: UNCHECKED ONGOING 1 G (GRAM) TABLET PO (ORAL) TID (THREE
     Route: 048
     Dates: start: 20201111, end: 20201112
  51. TRANEXAMIC ACID [Concomitant]
     Active Substance: TRANEXAMIC ACID
     Dosage: 1 G FREQ: 0.33 DAY
     Route: 048
     Dates: start: 20201112, end: 20201113
  52. VANCOMYCIN [Concomitant]
     Active Substance: VANCOMYCIN
     Indication: Clostridium difficile infection
     Dosage: 125 MG, 0.25/DAY
     Route: 048
     Dates: start: 20201030, end: 20201104
  53. VANCOMYCIN [Concomitant]
     Active Substance: VANCOMYCIN
     Dosage: 500 MG, EVERY 0.25 DAY
     Route: 048
     Dates: start: 20201104, end: 20201113
  54. VANCOMYCIN [Concomitant]
     Active Substance: VANCOMYCIN
     Dosage: CAPSULE PO (ORAL) QID (FOUR TIMES A DAY)
     Route: 048
     Dates: start: 20201113
  55. ZOLEDRONIC ACID [Concomitant]
     Active Substance: ZOLEDRONIC ACID
     Dosage: 4 MG
     Route: 042
     Dates: start: 20170525, end: 20201022
  56. SORBINICATE [Concomitant]
     Active Substance: SORBINICATE
     Dosage: EVERY 0.25 DAYS
     Route: 060
     Dates: start: 20170526
  57. CARBOXYMETHYLCELLULOSE SODIUM\DEVICE\SORBINICATE [Concomitant]
     Active Substance: CARBOXYMETHYLCELLULOSE SODIUM\DEVICE\SORBINICATE
     Dosage: 1 SPRAY, EVERY 0.25 DAY
     Route: 060
     Dates: start: 20170526, end: 2017

REACTIONS (6)
  - Breast cancer [Fatal]
  - Disease progression [Fatal]
  - Pyrexia [Not Recovered/Not Resolved]
  - Abdominal pain [Not Recovered/Not Resolved]
  - Pyrexia [Recovered/Resolved]
  - Off label use [Unknown]

NARRATIVE: CASE EVENT DATE: 20200724
